FAERS Safety Report 9433141 (Version 1)
Quarter: 2013Q3

REPORT INFORMATION
  Report Type: Spontaneous
  Country: FR (occurrence: FR)
  Receive Date: 20130731
  Receipt Date: 20130731
  Transmission Date: 20140515
  Serious: Yes (Hospitalization)
  Sender: FDA-Public Use
  Company Number: FR-BAXTER-2013BAX029361

PATIENT
  Age: 41 Year
  Sex: Female

DRUGS (3)
  1. ENDOXAN 500 MG, LYOPHILISAT POUR SOLUTION INJECTABLE [Suspect]
     Indication: BREAST CANCER
     Route: 042
     Dates: start: 20130705, end: 20130705
  2. FLUOROURACILE [Suspect]
     Indication: BREAST CANCER
     Route: 042
     Dates: start: 20130705, end: 20130705
  3. EPIRUBICINE [Suspect]
     Indication: BREAST CANCER
     Route: 042
     Dates: start: 20130705, end: 20130705

REACTIONS (1)
  - Hepatitis [Recovered/Resolved]
